FAERS Safety Report 10508844 (Version 2)
Quarter: 2014Q4

REPORT INFORMATION
  Report Type: Spontaneous
  Country: JP (occurrence: JP)
  Receive Date: 20141009
  Receipt Date: 20141009
  Transmission Date: 20150528
  Serious: Yes (Other)
  Sender: FDA-Public Use
  Company Number: JP-ASTRAZENECA-2014SE71309

PATIENT
  Age: 20 Year
  Sex: Male
  Weight: 65 kg

DRUGS (7)
  1. FENTANYL. [Suspect]
     Active Substance: FENTANYL
     Indication: INDUCTION AND MAINTENANCE OF ANAESTHESIA
     Dosage: MAINTENANCE OF ANAESTHESIA: DOSE UNKNOWN
     Route: 042
  2. DIPRIVAN KIT [Suspect]
     Active Substance: PROPOFOL
     Indication: INDUCTION AND MAINTENANCE OF ANAESTHESIA
     Dosage: INDUCTION OF ANAESTHESIA: STARTED AT 5 MCG/ML
     Route: 042
  3. DIPRIVAN KIT [Suspect]
     Active Substance: PROPOFOL
     Indication: INDUCTION AND MAINTENANCE OF ANAESTHESIA
     Dosage: MAINTENANCE OF ANAESTHESIA: 3-3.5 MCG/ML
     Route: 042
  4. FENTANYL. [Suspect]
     Active Substance: FENTANYL
     Indication: INDUCTION AND MAINTENANCE OF ANAESTHESIA
     Dosage: INDUCTION OF ANAESTHESIA: 0.2 MG
     Route: 042
  5. ROCURONIUM BROMIDE. [Suspect]
     Active Substance: ROCURONIUM BROMIDE
     Indication: INDUCTION AND MAINTENANCE OF ANAESTHESIA
     Dosage: INDUCTION OF ANAESTHESIA: 50 MG
     Route: 042
  6. ROCURONIUM BROMIDE. [Suspect]
     Active Substance: ROCURONIUM BROMIDE
     Indication: INDUCTION AND MAINTENANCE OF ANAESTHESIA
     Dosage: MAINTENANCE OF ANAESTHESIA: DOSE UNKNOWN
     Route: 042
  7. REMIFENTANIL HYDROCHLORIDE [Suspect]
     Active Substance: REMIFENTANIL HYDROCHLORIDE
     Indication: MAINTENANCE OF ANAESTHESIA
     Dosage: 0.2 MCG/KG/MIN
     Route: 042

REACTIONS (1)
  - Reexpansion pulmonary oedema [Recovered/Resolved]

NARRATIVE: CASE EVENT DATE: 20140218
